FAERS Safety Report 16150051 (Version 1)
Quarter: 2019Q2

REPORT INFORMATION
  Report Type: Spontaneous
  Country: US (occurrence: US)
  Receive Date: 20190402
  Receipt Date: 20190402
  Transmission Date: 20190711
  Serious: Yes (Other)
  Sender: FDA-Public Use
  Company Number: None

PATIENT
  Age: 79 Year
  Sex: Female
  Weight: 94.5 kg

DRUGS (1)
  1. GABAPENTIN 100 MG. CAPSULES [Suspect]
     Active Substance: GABAPENTIN
     Indication: PAIN IN EXTREMITY
     Dosage: ?          QUANTITY:1 TABLET(S);?
     Dates: start: 20190215, end: 20190217

REACTIONS (2)
  - Tinnitus [None]
  - Deafness [None]

NARRATIVE: CASE EVENT DATE: 20190221
